FAERS Safety Report 22072976 (Version 1)
Quarter: 2023Q1

REPORT INFORMATION
  Report Type: Spontaneous
  Country: DK (occurrence: DK)
  Receive Date: 20230308
  Receipt Date: 20230308
  Transmission Date: 20230417
  Serious: Yes (Other)
  Sender: FDA-Public Use
  Company Number: None

PATIENT
  Age: 25 Year
  Sex: Female

DRUGS (1)
  1. DICLOXACILLIN SODIUM [Suspect]
     Active Substance: DICLOXACILLIN SODIUM
     Indication: Soft tissue infection
     Dosage: 3000 MG,QD DOSE (PRESCRIBED TO BE TAKEN UNTIL 07OCT2022, UNKNOWN IF THIS WAS DONE).STRENGTH 500 MG.
     Route: 048
     Dates: start: 20220929

REACTIONS (1)
  - Suspected transmission of an infectious agent via product [Unknown]

NARRATIVE: CASE EVENT DATE: 20221020
